FAERS Safety Report 5318910-X (Version None)
Quarter: 2007Q1

REPORT INFORMATION
  Report Type: 
  Country: None (occurrence: None)
  Receive Date: 20070202
  Receipt Date: 20061214
  Transmission Date: 20070707
  Serious: Yes (Hospitalization)
  Sender: FDA-Public Use
  Company Number: 258231

PATIENT
  Age: 62 Year
  Sex: Female
  Weight: 129.3 kg

DRUGS (2)
  1. NOVOLOG [Suspect]
     Indication: INSULIN-REQUIRING TYPE II DIABETES MELLITUS
     Dosage: 45 LU,TID; SUBCUTANEOUS
     Route: 058
     Dates: start: 20060201
  2. HUMULIN N (INSULIN INJECTION, ISOPHANE) [Concomitant]

REACTIONS (1)
  - BLOOD GLUCOSE INCREASED [None]
